FAERS Safety Report 7383709-X (Version None)
Quarter: 2011Q1

REPORT INFORMATION
  Report Type: 
  Country: None (occurrence: None)
  Receive Date: 20110328
  Receipt Date: 20110328
  Transmission Date: 20110831
  Serious: Yes (Life-Threatening, Hospitalization)
  Sender: FDA-Public Use
  Company Number: None

PATIENT
  Age: 66 Year
  Sex: Female
  Weight: 95.2554 kg

DRUGS (1)
  1. ANASTROZOLE [Suspect]
     Indication: BREAST CANCER
     Dosage: 1MG DAILY PO
     Route: 048
     Dates: start: 20101205, end: 20110305

REACTIONS (2)
  - PRODUCT SUBSTITUTION ISSUE [None]
  - PULMONARY EMBOLISM [None]
